FAERS Safety Report 6151885-2 (Version None)
Quarter: 2009Q2

REPORT INFORMATION
  Report Type: 
  Country: None (occurrence: None)
  Receive Date: 20090408
  Receipt Date: 20090330
  Transmission Date: 20091009
  Serious: Yes (Life-Threatening, Other)
  Sender: FDA-Public Use
  Company Number: 2002000540-FJ

PATIENT
  Age: 15 Year
  Sex: Male

DRUGS (18)
  1. PROGRAF [Suspect]
     Indication: BONE MARROW TRANSPLANT
     Dosage: SEE IMAGE
     Route: 042
     Dates: start: 19991109, end: 19991110
  2. PROGRAF [Suspect]
     Indication: BONE MARROW TRANSPLANT
     Dosage: SEE IMAGE
     Route: 042
     Dates: start: 19991111, end: 19991114
  3. PROGRAF [Suspect]
     Indication: BONE MARROW TRANSPLANT
     Dosage: SEE IMAGE
     Route: 042
     Dates: start: 19991115, end: 19991122
  4. PROGRAF [Suspect]
     Indication: BONE MARROW TRANSPLANT
     Dosage: SEE IMAGE
     Route: 042
     Dates: start: 19991123, end: 19991123
  5. PROGRAF [Suspect]
     Indication: BONE MARROW TRANSPLANT
     Dosage: SEE IMAGE
     Route: 042
     Dates: start: 19991124, end: 19991126
  6. PROGRAF [Suspect]
     Indication: BONE MARROW TRANSPLANT
     Dosage: SEE IMAGE
     Route: 042
     Dates: start: 19991126, end: 19991205
  7. PROGRAF [Suspect]
     Indication: BONE MARROW TRANSPLANT
     Dosage: SEE IMAGE
     Route: 042
     Dates: start: 19991109, end: 19991219
  8. PROGRAF [Suspect]
     Indication: BONE MARROW TRANSPLANT
     Dosage: SEE IMAGE
     Route: 042
     Dates: start: 19991206, end: 19991219
  9. PREDNISOLONE [Concomitant]
  10. METHYLPREDNISOLONE 4MG TAB [Concomitant]
  11. BUPRENORPHINE HYDROCHLORIDE [Concomitant]
  12. AMPHOTERICIN B [Concomitant]
  13. ACYCLOVIR [Concomitant]
  14. CEFTAZIDIME [Concomitant]
  15. CEFPIROME SULFATE [Concomitant]
  16. PANIPENEM/BETAMIPRON [Concomitant]
  17. DOPAMINE HYDROCHLORIDE [Concomitant]
  18. CYCLOSPORINE [Concomitant]

REACTIONS (3)
  - GASTROINTESTINAL CANDIDIASIS [None]
  - HYPERNATRAEMIA [None]
  - RENAL IMPAIRMENT [None]
